FAERS Safety Report 10169298 (Version 2)
Quarter: 2014Q2

REPORT INFORMATION
  Report Type: Report from Study
  Country: NL (occurrence: NL)
  Receive Date: 20140513
  Receipt Date: 20140513
  Transmission Date: 20141212
  Serious: Yes (Death, Life-Threatening)
  Sender: FDA-Public Use
  Company Number: NL-ABBVIE-13P-114-1038472-00

PATIENT
  Age: 79 Year
  Sex: Male

DRUGS (1)
  1. LUCRIN DEPOT [Suspect]
     Indication: PROSTATE CANCER
     Route: 058
     Dates: start: 20121016, end: 20131223

REACTIONS (6)
  - Death [Fatal]
  - Terminal state [Not Recovered/Not Resolved]
  - Hot flush [Not Recovered/Not Resolved]
  - Dizziness [Not Recovered/Not Resolved]
  - Fluid retention [Not Recovered/Not Resolved]
  - Abdominal discomfort [Not Recovered/Not Resolved]
